FAERS Safety Report 4795099-7 (Version None)
Quarter: 2005Q4

REPORT INFORMATION
  Report Type: 
  Country: None (occurrence: None)
  Receive Date: 20051012
  Receipt Date: 20051010
  Transmission Date: 20060501
  Serious: Yes (Death)
  Sender: FDA-Public Use
  Company Number: DE-BRISTOL-MYERS SQUIBB COMPANY-13139902

PATIENT
  Age: 73 Year
  Sex: Female
  Weight: 63 kg

DRUGS (2)
  1. TAXOL [Suspect]
     Indication: CERVIX CARCINOMA
     Route: 042
     Dates: start: 20050929, end: 20050929
  2. CARBOPLATIN [Suspect]
     Indication: CERVIX CARCINOMA
     Route: 042
     Dates: start: 20050929, end: 20050929

REACTIONS (1)
  - DEATH [None]
